FAERS Safety Report 4476332-8 (Version None)
Quarter: 2004Q4

REPORT INFORMATION
  Report Type: 
  Country: None (occurrence: None)
  Receive Date: 20041016
  Receipt Date: 20041005
  Transmission Date: 20050328
  Serious: Yes (Life-Threatening, Hospitalization)
  Sender: FDA-Public Use
  Company Number: CA-MERCK-0410CAN00180

PATIENT
  Age: 53 Year
  Sex: Female

DRUGS (2)
  1. ATORVASTATIN CALCIUM [Concomitant]
     Route: 065
  2. VIOXX [Suspect]
     Indication: ARTHRITIS
     Route: 048
     Dates: start: 20001001

REACTIONS (2)
  - CARDIAC DISORDER [None]
  - CARDIAC OPERATION [None]
